FAERS Safety Report 5579577-9 (Version None)
Quarter: 2008Q1

REPORT INFORMATION
  Report Type: 
  Country: None (occurrence: None)
  Receive Date: 20080102
  Receipt Date: 20071228
  Transmission Date: 20080703
  Serious: Yes (Death, Other)
  Sender: FDA-Public Use
  Company Number: IT-SANOFI-SYNTHELABO-F01200701769

PATIENT

DRUGS (3)
  1. IRINOTECAN [Suspect]
     Route: 065
  2. CAPECITABINE [Suspect]
     Route: 065
  3. OXALIPLATIN [Suspect]
     Indication: COLORECTAL CANCER METASTATIC
     Route: 065

REACTIONS (3)
  - DEATH [None]
  - DIARRHOEA [None]
  - SEPSIS [None]
